FAERS Safety Report 15939571 (Version 8)
Quarter: 2022Q4

REPORT INFORMATION
  Report Type: Spontaneous
  Country: US (occurrence: None)
  Receive Date: 20190208
  Receipt Date: 20221109
  Transmission Date: 20230112
  Serious: Yes (Death, Other)
  Sender: FDA-Public Use
  Company Number: 2018SF34894

PATIENT
  Age: 26734 Day
  Sex: Female
  Weight: 86.9 kg

DRUGS (48)
  1. NEXIUM [Suspect]
     Active Substance: ESOMEPRAZOLE MAGNESIUM
     Dosage: 40 MG DAILY
     Route: 048
  2. NEXIUM 24HR [Suspect]
     Active Substance: ESOMEPRAZOLE MAGNESIUM
     Dosage: 20 MG DAILY
     Route: 048
  3. PRILOSEC [Suspect]
     Active Substance: OMEPRAZOLE MAGNESIUM
     Indication: Gastrooesophageal reflux disease
     Dosage: GENERIC
     Route: 065
     Dates: start: 20071203, end: 20161029
  4. PRILOSEC [Suspect]
     Active Substance: OMEPRAZOLE MAGNESIUM
     Indication: Gastrooesophageal reflux disease
     Dosage: 40 MG DAILY
     Route: 048
  5. PRILOSEC OTC [Suspect]
     Active Substance: OMEPRAZOLE MAGNESIUM
     Indication: Gastrooesophageal reflux disease
     Route: 048
     Dates: start: 20030914, end: 20170401
  6. PRILOSEC OTC [Suspect]
     Active Substance: OMEPRAZOLE MAGNESIUM
     Indication: Gastrooesophageal reflux disease
     Dosage: 20 MG DAILY
     Route: 048
  7. PREVACID [Suspect]
     Active Substance: LANSOPRAZOLE
     Indication: Gastrooesophageal reflux disease
     Dosage: GENERIC
     Route: 065
     Dates: start: 19950510, end: 20170401
  8. PREVACID [Suspect]
     Active Substance: LANSOPRAZOLE
     Indication: Gastrooesophageal reflux disease
     Dosage: 40 MG DAILY
     Route: 065
  9. PREVACID 24 HR [Suspect]
     Active Substance: LANSOPRAZOLE
     Dosage: 15 MG DAILY
     Route: 065
  10. PROTONIX [Suspect]
     Active Substance: PANTOPRAZOLE SODIUM
     Indication: Gastrooesophageal reflux disease
     Route: 065
  11. PROTONIX [Suspect]
     Active Substance: PANTOPRAZOLE SODIUM
     Indication: Gastrooesophageal reflux disease
     Dosage: GENERIC
     Route: 065
     Dates: start: 20100923, end: 20161005
  12. HEPARIN [Concomitant]
     Active Substance: HEPARIN SODIUM
  13. BENADRYL [Concomitant]
     Active Substance: DIPHENHYDRAMINE HYDROCHLORIDE
  14. ACETAMINOPHEN [Concomitant]
     Active Substance: ACETAMINOPHEN
  15. CLONIDINE [Concomitant]
     Active Substance: CLONIDINE
  16. NITROSTAT [Concomitant]
     Active Substance: NITROGLYCERIN
  17. VENOFER [Concomitant]
     Active Substance: IRON SUCROSE
  18. ADVAIR DISKUS [Concomitant]
     Active Substance: FLUTICASONE PROPIONATE\SALMETEROL XINAFOATE
  19. ALBUTEROL SULFATE [Concomitant]
     Active Substance: ALBUTEROL SULFATE
  20. ASPIRIN [Concomitant]
     Active Substance: ASPIRIN
  21. ATORVASTATIN [Concomitant]
     Active Substance: ATORVASTATIN
  22. BRILINTA [Concomitant]
     Active Substance: TICAGRELOR
  23. CYMBALTA [Concomitant]
     Active Substance: DULOXETINE HYDROCHLORIDE
  24. HUMALOG [Concomitant]
     Active Substance: INSULIN LISPRO
  25. HYDRALAZINE [Concomitant]
     Active Substance: HYDRALAZINE HYDROCHLORIDE
  26. IMDUR [Concomitant]
     Active Substance: ISOSORBIDE MONONITRATE
  27. MIRALAX [Concomitant]
     Active Substance: POLYETHYLENE GLYCOL 3350
  28. SPIRIVA [Concomitant]
     Active Substance: TIOTROPIUM BROMIDE MONOHYDRATE
  29. ULORIC [Concomitant]
     Active Substance: FEBUXOSTAT
  30. VITAMIN D3 [Concomitant]
     Active Substance: CHOLECALCIFEROL
  31. LISINOPRIL [Concomitant]
     Active Substance: LISINOPRIL
     Indication: Hypertension
  32. METOPROLOL [Concomitant]
     Active Substance: METOPROLOL
     Indication: Hypertension
  33. HYDROCHLOROTHIAZIDE [Concomitant]
     Active Substance: HYDROCHLOROTHIAZIDE
     Indication: Hypertension
  34. TRIAMTERENE [Concomitant]
     Active Substance: TRIAMTERENE
  35. NORVASC [Concomitant]
     Active Substance: AMLODIPINE BESYLATE
  36. MECLIZINE [Concomitant]
     Active Substance: MECLIZINE HYDROCHLORIDE
  37. DIOVAN [Concomitant]
     Active Substance: VALSARTAN
  38. FISH OIL [Concomitant]
     Active Substance: FISH OIL
  39. BISOPROLOL [Concomitant]
     Active Substance: BISOPROLOL
  40. BUMETANIDE [Concomitant]
     Active Substance: BUMETANIDE
  41. DILTIAZEM [Concomitant]
     Active Substance: DILTIAZEM
  42. DUTASTERIDE [Concomitant]
     Active Substance: DUTASTERIDE
  43. NEURONTIN [Concomitant]
     Active Substance: GABAPENTIN
  44. ZETIA [Concomitant]
     Active Substance: EZETIMIBE
  45. NABUMETONE [Concomitant]
     Active Substance: NABUMETONE
  46. METANX [Concomitant]
     Active Substance: LEVOMEFOLATE CALCIUM\METHYLCOBALAMIN\PYRIDOXAL PHOSPHATE ANHYDROUS
  47. ECOTRIN [Concomitant]
     Active Substance: ASPIRIN
  48. TORADOL [Concomitant]
     Active Substance: KETOROLAC TROMETHAMINE
     Dates: start: 20110329

REACTIONS (9)
  - Coronary artery disease [Fatal]
  - Chronic kidney disease [Unknown]
  - Renal failure [Unknown]
  - Renal injury [Unknown]
  - End stage renal disease [Unknown]
  - Acute kidney injury [Unknown]
  - Nephrogenic anaemia [Unknown]
  - Hyperparathyroidism secondary [Unknown]
  - Hyperkalaemia [Unknown]

NARRATIVE: CASE EVENT DATE: 20100607
